FAERS Safety Report 4935978-0 (Version None)
Quarter: 2006Q1

REPORT INFORMATION
  Report Type: 
  Country: None (occurrence: None)
  Receive Date: 20060307
  Receipt Date: 20050812
  Transmission Date: 20060701
  Serious: No
  Sender: FDA-Public Use
  Company Number: US-GLAXOSMITHKLINE-A0570050A

PATIENT
  Age: 69 Year
  Sex: Male
  Weight: 72.7 kg

DRUGS (6)
  1. REQUIP [Suspect]
     Indication: RESTLESS LEGS SYNDROME
     Dosage: 2.5MG PER DAY
     Route: 048
     Dates: start: 20030101
  2. ZOLOFT [Concomitant]
  3. LIPITOR [Concomitant]
  4. PREVACID [Concomitant]
  5. ASPIRIN [Concomitant]
  6. DILTIAZEM [Concomitant]

REACTIONS (1)
  - RESTLESS LEGS SYNDROME [None]
